FAERS Safety Report 13625533 (Version 1)
Quarter: 2017Q2

REPORT INFORMATION
  Report Type: Report from Study
  Country: IT (occurrence: IT)
  Receive Date: 20170607
  Receipt Date: 20170607
  Transmission Date: 20170830
  Serious: Yes (Other)
  Sender: FDA-Public Use
  Company Number: IT-PFIZER INC-2017238467

PATIENT
  Age: 4 Year
  Sex: Male

DRUGS (5)
  1. CYCLOPHOSPHAMIDE. [Suspect]
     Active Substance: CYCLOPHOSPHAMIDE
     Indication: NEUROBLASTOMA
     Dosage: UNK
  2. TENIPOSIDE. [Suspect]
     Active Substance: TENIPOSIDE
     Indication: NEUROBLASTOMA
     Dosage: UNK
  3. DOXORUBICIN HCL [Suspect]
     Active Substance: DOXORUBICIN HYDROCHLORIDE
     Indication: NEUROBLASTOMA
     Dosage: UNK
  4. CISPLATIN. [Suspect]
     Active Substance: CISPLATIN
     Indication: NEUROBLASTOMA
     Dosage: UNK
  5. PEPTICHEMIO [Suspect]
     Active Substance: PEPTICHEMIO
     Indication: NEUROBLASTOMA
     Dosage: UNK

REACTIONS (2)
  - Malignant fibrous histiocytoma [Recovered/Resolved]
  - Second primary malignancy [Recovered/Resolved]
